FAERS Safety Report 14955864 (Version 1)
Quarter: 2018Q2

REPORT INFORMATION
  Report Type: Spontaneous
  Country: DE (occurrence: DE)
  Receive Date: 20180531
  Receipt Date: 20180531
  Transmission Date: 20180711
  Serious: Yes (Hospitalization)
  Sender: FDA-Public Use
  Company Number: DE-CPL-000474

PATIENT
  Age: 92 Year
  Sex: Female

DRUGS (11)
  1. ALENDRONATE SODIUM/ALENDRONIC ACID [Concomitant]
     Dosage: STRENGTH 70 MG, 1 X/WEEK
  2. LACTULOSE. [Concomitant]
     Active Substance: LACTULOSE
     Dosage: NK MG, NK
  3. OXYCODONE/OXYCODONE HYDROCHLORIDE/OXYCODONE PECTINATE/OXYCODONE TEREPHTHALATE [Suspect]
     Active Substance: OXYCODONE
     Indication: PRODUCT USED FOR UNKNOWN INDICATION
     Dosage: STRENGTH 10 MG, 1-0-0-1
  4. CALCIVIT D FORTE [Concomitant]
     Dosage: 1000/880 MG/IE, 1-1-0-0
  5. TORASEMIDE [Suspect]
     Active Substance: TORSEMIDE
     Indication: PRODUCT USED FOR UNKNOWN INDICATION
     Dosage: STRENGTH 20 MG, 0.25-0-0-0
  6. METAMIZOLE SODIUM [Concomitant]
     Active Substance: METAMIZOLE SODIUM
     Dosage: NK MG, 40-40-40-40, TROPFEN
  7. METOCLOPRAMIDE. [Concomitant]
     Active Substance: METOCLOPRAMIDE
     Dosage: STRENGTH 10 MG, 0-1-0-1
  8. PANTOPRAZOLE [Concomitant]
     Active Substance: PANTOPRAZOLE
     Dosage: STRENGTH 40 MG, 1-0-0-0
  9. DONEPEZIL. [Suspect]
     Active Substance: DONEPEZIL
     Indication: PRODUCT USED FOR UNKNOWN INDICATION
     Dosage: STRENGTH 5 MG, 1-0-0-0
  10. PROPAFENONE. [Suspect]
     Active Substance: PROPAFENONE
     Indication: PRODUCT USED FOR UNKNOWN INDICATION
     Dosage: STRENGTH 150 MG, 1-0-1-0
  11. ACETYLSALICYLIC ACID [Concomitant]
     Active Substance: ASPIRIN
     Dosage: STRENGTH 100 MG, 0-1-0-0

REACTIONS (5)
  - Gastritis [Unknown]
  - Confusional state [Unknown]
  - Abdominal pain upper [Unknown]
  - Dehydration [Unknown]
  - Glomerular filtration rate decreased [None]
